FAERS Safety Report 23613024 (Version 1)
Quarter: 2024Q1

REPORT INFORMATION
  Report Type: Spontaneous
  Country: US (occurrence: US)
  Receive Date: 20240308
  Receipt Date: 20240308
  Transmission Date: 20240410
  Serious: Yes (Other)
  Sender: FDA-Public Use
  Company Number: US-MALLINCKRODT-MNK202401481

PATIENT
  Age: 55 Year
  Sex: Female
  Weight: 173 kg

DRUGS (1)
  1. CORTICOTROPIN [Suspect]
     Active Substance: CORTICOTROPIN
     Indication: Multiple sclerosis
     Dosage: UNKNOWN

REACTIONS (3)
  - Multiple sclerosis relapse [Unknown]
  - Viral infection [Unknown]
  - Influenza [Unknown]
